FAERS Safety Report 14540239 (Version 1)
Quarter: 2018Q1

REPORT INFORMATION
  Report Type: Spontaneous
  Country: GB (occurrence: GB)
  Receive Date: 20180216
  Receipt Date: 20180216
  Transmission Date: 20180509
  Serious: Yes (Death, Other)
  Sender: FDA-Public Use
  Company Number: GB-ASTELLAS-2018US008263

PATIENT
  Age: 46 Year
  Sex: Male

DRUGS (5)
  1. TACROLIMUS. [Suspect]
     Active Substance: TACROLIMUS
     Indication: LIVER TRANSPLANT
     Dosage: UNK UNK, UNKNOWN FREQ.
     Route: 065
  2. AZATHIOPRINE. [Suspect]
     Active Substance: AZATHIOPRINE
     Indication: LIVER TRANSPLANT
     Dosage: UNK UNK, UNKNOWN FREQ.
     Route: 065
  3. PREDNISOLONE. [Suspect]
     Active Substance: PREDNISOLONE
     Indication: LIVER TRANSPLANT
     Dosage: UNK UNK, UNKNOWN FREQ.
     Route: 065
  4. PENICILLIN V                       /00001801/ [Concomitant]
     Active Substance: PENICILLIN V
     Indication: INFECTION PROPHYLAXIS
     Dosage: UNK UNK, UNKNOWN FREQ.
     Route: 065
  5. VALGANCICLOVIR. [Concomitant]
     Active Substance: VALGANCICLOVIR
     Indication: INFECTION PROPHYLAXIS
     Dosage: UNK UNK, UNKNOWN FREQ.
     Route: 065

REACTIONS (17)
  - Immunodeficiency common variable [Unknown]
  - Hepatitis [Unknown]
  - Clostridium difficile infection [Unknown]
  - Acute myeloid leukaemia [Unknown]
  - Viral infection [Unknown]
  - Lower respiratory tract infection [Unknown]
  - Nodular regenerative hyperplasia [Unknown]
  - Parvovirus B19 infection [Unknown]
  - Hypogammaglobulinaemia [Unknown]
  - Death [Fatal]
  - Cholestasis [Unknown]
  - Pneumocystis jirovecii pneumonia [Unknown]
  - Toxoplasmosis [Recovering/Resolving]
  - Portal fibrosis [Unknown]
  - Liver disorder [Unknown]
  - Pseudomembranous colitis [Unknown]
  - Tonsil cancer [Unknown]
